FAERS Safety Report 5935414-1 (Version None)
Quarter: 2008Q4

REPORT INFORMATION
  Report Type: 
  Country: None (occurrence: None)
  Receive Date: 20081030
  Receipt Date: 20081017
  Transmission Date: 20090506
  Serious: Yes (Hospitalization)
  Sender: FDA-Public Use
  Company Number: US-ELI_LILLY_AND_COMPANY-US200810000274

PATIENT
  Sex: Female
  Weight: 70.748 kg

DRUGS (11)
  1. FORTEO [Suspect]
     Indication: OSTEOPOROSIS
     Dosage: 20 UG, DAILY (1/D)
     Dates: start: 20080101
  2. FOSAMAX [Concomitant]
  3. CALCIUM CARBONATE [Concomitant]
  4. ERGOCALCIFEROL [Concomitant]
  5. IBUPROFEN TABLETS [Concomitant]
  6. LIPITOR [Concomitant]
  7. IMITREX [Concomitant]
  8. BACLOFEN [Concomitant]
  9. AMITRIPTYLINE HCL [Concomitant]
  10. AVAPRO [Concomitant]
  11. ASPIRIN [Concomitant]

REACTIONS (1)
  - INTERVERTEBRAL DISC PROTRUSION [None]
